FAERS Safety Report 11479335 (Version 2)
Quarter: 2015Q3

REPORT INFORMATION
  Report Type: Spontaneous
  Country: US (occurrence: None)
  Receive Date: 20150909
  Receipt Date: 20150915
  Transmission Date: 20151125
  Serious: Yes (Other)
  Sender: FDA-Public Use
  Company Number: US-MDT-ADR-2015-01743

PATIENT
  Age: 52 Year
  Sex: Female

DRUGS (2)
  1. BUPIVACAINE INTRATHECAL (2 MG/ML) [Suspect]
     Active Substance: BUPIVACAINE
     Dosage: 0.5 MG/DAY
  2. COMPOUNDED BACLOFEN INTRATHECAL (125 MCG/ML) [Suspect]
     Active Substance: BACLOFEN
     Dosage: 34.35 MCG/DAY

REACTIONS (2)
  - Pain in extremity [None]
  - Groin pain [None]
